FAERS Safety Report 25886684 (Version 1)
Quarter: 2025Q4

REPORT INFORMATION
  Report Type: Spontaneous
  Country: US (occurrence: None)
  Receive Date: 20251005
  Receipt Date: 20251005
  Transmission Date: 20260118
  Serious: Yes (Other)
  Sender: FDA-CTU
  Company Number: None

PATIENT
  Age: 69 Year
  Sex: Female
  Weight: 135.9 kg

DRUGS (17)
  1. OXYTROL [Suspect]
     Active Substance: OXYBUTYNIN
     Indication: Hypertonic bladder
     Dosage: OTHER QUANTITY : 1 PATCH(ES);?
     Route: 062
     Dates: start: 20250930, end: 20251002
  2. OXYTROL [Suspect]
     Active Substance: OXYBUTYNIN
     Indication: Incontinence
  3. LEVOTHYROXINE [Concomitant]
     Active Substance: LEVOTHYROXINE
  4. monoleukast [Concomitant]
  5. ATORVASTATIN CALCIUM [Concomitant]
     Active Substance: ATORVASTATIN CALCIUM
  6. LOSARTAN [Concomitant]
     Active Substance: LOSARTAN
  7. LASIX [Concomitant]
     Active Substance: FUROSEMIDE
  8. ACTEMRA [Concomitant]
     Active Substance: TOCILIZUMAB
  9. methythyltrexate [Concomitant]
  10. AMLODIPINE [Concomitant]
     Active Substance: AMLODIPINE BESYLATE
  11. VITAMINS [Concomitant]
     Active Substance: VITAMINS
  12. VITAMIN B COMPLEX [Concomitant]
     Active Substance: CYANOCOBALAMIN\DEXPANTHENOL\NIACINAMIDE\PYRIDOXINE HYDROCHLORIDE\RIBOFLAVIN 5^-PHOSPHATE SODIUM\THIA
  13. digestuve pre + probiotics [Concomitant]
  14. VITAMIN D NOS [Concomitant]
     Active Substance: CHOLECALCIFEROL\ERGOCALCIFEROL
  15. CALCIUM [Concomitant]
     Active Substance: CALCIUM
  16. MAGNESIUM [Concomitant]
     Active Substance: MAGNESIUM
  17. METAMUCIL [Suspect]
     Active Substance: PLANTAGO SEED

REACTIONS (3)
  - Blood pressure increased [None]
  - Physical product label issue [None]
  - Product communication issue [None]

NARRATIVE: CASE EVENT DATE: 20251002
